FAERS Safety Report 13520418 (Version 1)
Quarter: 2017Q2

REPORT INFORMATION
  Report Type: Spontaneous
  Country: DE (occurrence: DE)
  Receive Date: 20170507
  Receipt Date: 20170507
  Transmission Date: 20170830
  Serious: Yes (Other)
  Sender: FDA-Public Use
  Company Number: DE-009507513-1705DEU002466

PATIENT
  Age: 55 Year
  Sex: Male

DRUGS (1)
  1. NOXAFIL [Suspect]
     Active Substance: POSACONAZOLE
     Dosage: 100 MG, THREE TIMES A DAY
     Route: 048
     Dates: start: 20160629, end: 20170117

REACTIONS (5)
  - Musculoskeletal discomfort [Recovered/Resolved]
  - Musculoskeletal pain [Recovered/Resolved]
  - Arthralgia [Recovered/Resolved]
  - Joint swelling [Recovered/Resolved]
  - Plasmacytoma [Not Recovered/Not Resolved]

NARRATIVE: CASE EVENT DATE: 20160926
